FAERS Safety Report 8244977-5 (Version None)
Quarter: 2012Q1

REPORT INFORMATION
  Report Type: 
  Country: None (occurrence: None)
  Receive Date: 20120329
  Receipt Date: 20111103
  Transmission Date: 20120608
  Serious: No
  Sender: FDA-Public Use
  Company Number: US-MYLANLABS-2011S1022875

PATIENT
  Sex: Male

DRUGS (13)
  1. FENTANYL-100 [Suspect]
     Dosage: CHANGED Q48H
     Route: 062
     Dates: start: 20110501
  2. ASPIRIN [Concomitant]
  3. VITAMIN D [Concomitant]
  4. PROAIR HFA [Concomitant]
  5. PLAQUENIL [Concomitant]
  6. XANAX [Concomitant]
  7. METOPROLOL SUCCINATE [Concomitant]
  8. FENTANYL-100 [Suspect]
     Indication: PAIN
     Dosage: CHANGED Q48H
     Route: 062
     Dates: start: 20110501
  9. LIPITOR [Concomitant]
  10. PREDNISONE TAB [Concomitant]
  11. LACTULOSE [Concomitant]
  12. PLAVIX [Concomitant]
  13. PREVACID [Concomitant]

REACTIONS (3)
  - DRUG SCREEN NEGATIVE [None]
  - DRUG INEFFECTIVE [None]
  - PAIN [None]
